FAERS Safety Report 8831459 (Version 1)
Quarter: 2012Q4

REPORT INFORMATION
  Report Type: 
  Country: US (occurrence: US)
  Receive Date: 20121009
  Receipt Date: 20121009
  Transmission Date: 20130627
  Serious: Yes (Other)
  Sender: FDA-Public Use
  Company Number: US-ROCHE-1134612

PATIENT
  Sex: Female

DRUGS (7)
  1. RITUXAN [Suspect]
     Indication: HAEMOLYTIC ANAEMIA
     Route: 065
     Dates: start: 20010509
  2. RITUXAN [Suspect]
     Indication: OFF LABEL USE
  3. PREDNISOLONE [Concomitant]
     Route: 065
  4. FOLIC ACID [Concomitant]
     Route: 065
  5. IMURAN [Concomitant]
     Route: 065
  6. FERROUS SULFATE [Concomitant]
     Route: 065
  7. PEPCID [Concomitant]
     Route: 065

REACTIONS (3)
  - Anaemia [Unknown]
  - Oedema [Unknown]
  - Asthenia [Unknown]
